FAERS Safety Report 18554203 (Version 1)
Quarter: 2020Q4

REPORT INFORMATION
  Report Type: Spontaneous
  Country: GB (occurrence: GB)
  Receive Date: 20201127
  Receipt Date: 20201127
  Transmission Date: 20210114
  Serious: Yes (Other)
  Sender: FDA-Public Use
  Company Number: GB-ACIC FINE CHEMICALS INC-2096366

PATIENT
  Age: 46 Year
  Sex: Female

DRUGS (2)
  1. TRANEXAMIC ACID. [Suspect]
     Active Substance: TRANEXAMIC ACID
     Indication: MENORRHAGIA
     Dates: start: 2018
  2. MEFENAMIC ACID. [Suspect]
     Active Substance: MEFENAMIC ACID
     Dates: start: 2018

REACTIONS (10)
  - Lung consolidation [Unknown]
  - Musculoskeletal pain [Unknown]
  - Cough [Recovered/Resolved]
  - Fibrin D dimer increased [Unknown]
  - Pulmonary embolism [Recovered/Resolved]
  - Dyspnoea [Recovered/Resolved]
  - Anxiety [Unknown]
  - Intentional product use issue [Unknown]
  - Non-cardiac chest pain [Unknown]
  - Quality of life decreased [Unknown]
